FAERS Safety Report 26206060 (Version 1)
Quarter: 2025Q4

REPORT INFORMATION
  Report Type: Spontaneous
  Country: US (occurrence: US)
  Receive Date: 20251229
  Receipt Date: 20251229
  Transmission Date: 20260118
  Serious: No
  Sender: TOLMAR
  Company Number: US-Tolmar-TLM-2025-09614

PATIENT

DRUGS (3)
  1. ELIGARD [Suspect]
     Active Substance: LEUPROLIDE ACETATE
     Indication: Prostate cancer
     Dosage: BOX LOT: 15371CUS EXP: 12-2026?SYRINGE A: 15371AUS EXP: 12-2026?SYRINGE B: 15371BUS EXP: 12-2026?SN#
  2. ELIGARD [Suspect]
     Active Substance: LEUPROLIDE ACETATE
     Dosage: REPLACEMENT DOSE
  3. DEVICE [Suspect]
     Active Substance: DEVICE
     Indication: Prostate cancer
     Dosage: BOX LOT: 15371CUS EXP: 12-2026?SYRINGE A: 15371AUS EXP: 12-2026?SYRINGE B: 15371BUS EXP: 12-2026?SN#

REACTIONS (2)
  - Intercepted product preparation error [Unknown]
  - Device leakage [Unknown]
